FAERS Safety Report 5456720-3 (Version None)
Quarter: 2007Q3

REPORT INFORMATION
  Report Type: 
  Country: None (occurrence: None)
  Receive Date: 20070918
  Receipt Date: 20070228
  Transmission Date: 20080115
  Serious: No
  Sender: FDA-Public Use
  Company Number: US-ASTRAZENECA-2006UW26111

PATIENT
  Age: 37 Year
  Sex: Male
  Weight: 100 kg

DRUGS (2)
  1. SEROQUEL [Suspect]
     Indication: SLEEP DISORDER THERAPY
     Route: 048
  2. PROZAC [Concomitant]

REACTIONS (3)
  - ARTHROPATHY [None]
  - ROTATOR CUFF SYNDROME [None]
  - TYPE 2 DIABETES MELLITUS [None]
